FAERS Safety Report 19855473 (Version 1)
Quarter: 2021Q3

REPORT INFORMATION
  Report Type: Spontaneous
  Country: DE (occurrence: DE)
  Receive Date: 20210920
  Receipt Date: 20210920
  Transmission Date: 20211014
  Serious: Yes (Other)
  Sender: FDA-Public Use
  Company Number: DE-TEVA-2021-DE-1953115

PATIENT
  Age: 40 Year
  Sex: Female
  Weight: 61 kg

DRUGS (4)
  1. LAIF 900 [Concomitant]
     Indication: DEPRESSION
     Dosage: 900 MILLIGRAM DAILY; ADDITIONAL INFO : 0. ? 40.4. GESTATIONAL WEEK
     Route: 048
     Dates: start: 20200618, end: 20210329
  2. TRIMPIRAMIN [Concomitant]
     Indication: SLEEP DISORDER
     Dosage: 10 [MG / D (UP TO 9)] ,ADDITIONAL INFO : 0. ? 7.1. GESTATIONAL WEEK
     Route: 048
     Dates: start: 20200618, end: 20200807
  3. CLOMIFENE [Concomitant]
     Active Substance: CLOMIPHENE
     Indication: INFERTILITY FEMALE
     Dosage: 50 MILLIGRAM DAILY; ADDITIONAL INFO : 0.1. ? 0.6. GESTATIONAL WEEK
     Route: 048
     Dates: start: 20200619, end: 20200624
  4. ARIPIPRAZOL [Suspect]
     Active Substance: ARIPIPRAZOLE
     Indication: SCHIZOPHRENIA
     Dosage: 15 MILLIGRAM DAILY; ADDITIONAL INFO : 0. ? 40.4. GESTATIONAL WEEK
     Route: 048
     Dates: start: 20200618, end: 20210329

REACTIONS (2)
  - Gestational diabetes [Recovered/Resolved]
  - Exposure during pregnancy [Unknown]

NARRATIVE: CASE EVENT DATE: 20200618
